FAERS Safety Report 22344385 (Version 5)
Quarter: 2023Q4

REPORT INFORMATION
  Report Type: Report from Study
  Country: PL (occurrence: PL)
  Receive Date: 20230519
  Receipt Date: 20231122
  Transmission Date: 20240110
  Serious: Yes (Hospitalization)
  Sender: FDA-Public Use
  Company Number: PL-ROCHE-3344716

PATIENT
  Age: 87 Year
  Sex: Female

DRUGS (24)
  1. DOXORUBICIN HYDROCHLORIDE [Suspect]
     Active Substance: DOXORUBICIN HYDROCHLORIDE
     Indication: Diffuse large B-cell lymphoma
     Dosage: 95 MG, EVERY 3 WEEKS
     Route: 041
     Dates: start: 20230215
  2. RITUXIMAB [Suspect]
     Active Substance: RITUXIMAB
     Dosage: 712.5 MG, EVERY 3 WEEKS
     Route: 041
     Dates: start: 20230215
  3. GOLCADOMIDE [Suspect]
     Active Substance: GOLCADOMIDE
     Indication: Diffuse large B-cell lymphoma
     Dosage: UNK, 1X/DAY
     Route: 048
     Dates: start: 20230215
  4. PREDNISONE [Suspect]
     Active Substance: PREDNISONE
     Indication: Diffuse large B-cell lymphoma
     Dosage: MOST RECENT DOSE RECEIVED ON 19FEB2023
     Route: 048
     Dates: start: 20230215
  5. CYCLOPHOSPHAMIDE [Suspect]
     Active Substance: CYCLOPHOSPHAMIDE
     Indication: Diffuse large B-cell lymphoma
     Dosage: 1425 MG, EVERY 3 WEEKS
     Route: 041
     Dates: start: 20230215
  6. VINCRISTINE [Suspect]
     Active Substance: VINCRISTINE
     Indication: Diffuse large B-cell lymphoma
     Dosage: 1 MG, EVERY 3 WEEKS
     Route: 042
     Dates: start: 20230215
  7. FUROSEMIDE [Concomitant]
     Active Substance: FUROSEMIDE
     Dosage: 40 MG, 1X/DAY
     Route: 048
     Dates: start: 1990
  8. FUROSEMIDE [Concomitant]
     Active Substance: FUROSEMIDE
     Dosage: 20 MG, 1X/DAY
     Dates: start: 20230420, end: 20230420
  9. METOPROLOL SUCCINATE [Concomitant]
     Active Substance: METOPROLOL SUCCINATE
     Indication: Hypertension
     Dosage: 47.5 MG, 1X/DAY
     Route: 048
     Dates: start: 1990
  10. ZOXON [DOXAZOSIN] [Concomitant]
     Indication: Hypertension
     Dosage: 4 MG, 1X/DAY
     Route: 048
     Dates: start: 2000
  11. AMOXICILLIN\CLAVULANATE POTASSIUM [Concomitant]
     Active Substance: AMOXICILLIN\CLAVULANATE POTASSIUM
     Dosage: FREQ:.5 D; 2 IN 1 D
     Route: 048
     Dates: start: 20230405, end: 20230412
  12. ASPIRIN [Concomitant]
     Active Substance: ASPIRIN
     Indication: Myocardial ischaemia
     Dosage: 75 MG, 1X/DAY
     Route: 048
     Dates: start: 2000
  13. ENOXAPARIN SODIUM [Concomitant]
     Active Substance: ENOXAPARIN SODIUM
     Dosage: 40 MG, 1X/DAY
     Route: 058
     Dates: start: 20230215
  14. ENOXAPARIN SODIUM [Concomitant]
     Active Substance: ENOXAPARIN SODIUM
     Dosage: 40 MG, 1X/DAY
     Dates: start: 20230420, end: 20230420
  15. METHYLDOPA [Concomitant]
     Active Substance: METHYLDOPA
     Indication: Hypertension
     Dosage: 250 MG, 1X/DAY
     Route: 048
     Dates: start: 2018
  16. ALLOPURINOL [Concomitant]
     Active Substance: ALLOPURINOL
     Dosage: FREQ:.5 D; MG,2 IN 1 D
     Route: 048
     Dates: start: 20230213
  17. VALSARTAN [Concomitant]
     Active Substance: VALSARTAN
     Indication: Hypertension
     Dosage: 160 MG, 1X/DAY
     Route: 048
     Dates: start: 2018
  18. INDAPAMIDE [Concomitant]
     Active Substance: INDAPAMIDE
     Indication: Hypertension
     Dosage: 1.5 MG, 1X/DAY
     Route: 048
     Dates: start: 1990
  19. SODIUM CHLORIDE [Concomitant]
     Active Substance: SODIUM CHLORIDE
     Dosage: 500 ML, 1X/DAY
     Dates: start: 20230420, end: 20230420
  20. PEGYLATED GRANULOCYTE COLONY STIMULATING FACTOR [Concomitant]
     Dosage: 6 MG, 1X/DAY
     Dates: start: 20230421, end: 20230421
  21. ONDANSETRON [Concomitant]
     Active Substance: ONDANSETRON
     Dosage: 8 MG, 1X/DAY
     Dates: start: 20230420, end: 20230420
  22. TORSEMIDE [Concomitant]
     Active Substance: TORSEMIDE
     Indication: Hypertension
     Dosage: 10 MG
     Dates: start: 20230420
  23. CLEMASTINE [Concomitant]
     Active Substance: CLEMASTINE
     Dosage: 2 MG, 1X/DAY
     Dates: start: 20230420, end: 20230420
  24. METAMIZOLE MAGNESIUM [Concomitant]
     Active Substance: METAMIZOLE MAGNESIUM
     Dosage: 1000 MG, 1X/DAY
     Dates: start: 20230420, end: 20230420

REACTIONS (1)
  - Febrile neutropenia [Recovered/Resolved]

NARRATIVE: CASE EVENT DATE: 20230426
